FAERS Safety Report 5861395-5 (Version None)
Quarter: 2008Q3

REPORT INFORMATION
  Report Type: 
  Country: None (occurrence: None)
  Receive Date: 20080827
  Receipt Date: 20080417
  Transmission Date: 20090109
  Serious: No
  Sender: FDA-Public Use
  Company Number: US-ABBOTT-08P-163-0448359-00

PATIENT
  Sex: Female
  Weight: 59.928 kg

DRUGS (6)
  1. NIASPAN [Suspect]
     Indication: LOW DENSITY LIPOPROTEIN INCREASED
     Route: 048
     Dates: start: 20070101, end: 20080417
  2. NIASPAN [Suspect]
     Dates: start: 20080417
  3. ORENCIA [Concomitant]
     Indication: ARTHRITIS
     Route: 042
  4. LEVOTHYROXINE SODIUM [Concomitant]
     Indication: HYPOTHYROIDISM
     Route: 048
  5. OMEPRAZOLE [Concomitant]
     Indication: ULCER
     Route: 048
  6. METHOTREXATE [Concomitant]
     Indication: ARTHRITIS
     Route: 048

REACTIONS (1)
  - FLUSHING [None]
